FAERS Safety Report 23313683 (Version 1)
Quarter: 2023Q4

REPORT INFORMATION
  Report Type: Spontaneous
  Country: US (occurrence: US)
  Receive Date: 20231219
  Receipt Date: 20231219
  Transmission Date: 20240110
  Serious: Yes (Other)
  Sender: FDA-Public Use
  Company Number: US-BEH-2023166443

PATIENT
  Age: 52 Year
  Sex: Female

DRUGS (2)
  1. HIZENTRA [Suspect]
     Active Substance: HUMAN IMMUNOGLOBULIN G
     Indication: Chronic inflammatory demyelinating polyradiculoneuropathy
     Dosage: 40 GRAM, QW
     Route: 058
     Dates: start: 202311
  2. EPINEPHRINE [Concomitant]
     Active Substance: EPINEPHRINE

REACTIONS (8)
  - Chronic inflammatory demyelinating polyradiculoneuropathy [Unknown]
  - Respiration abnormal [Unknown]
  - Malabsorption from injection site [Unknown]
  - Injection site swelling [Unknown]
  - Injection site bruising [Unknown]
  - Nausea [Unknown]
  - Feeling hot [Unknown]
  - Peripheral swelling [Unknown]

NARRATIVE: CASE EVENT DATE: 20230101
